FAERS Safety Report 7018392-6 (Version None)
Quarter: 2010Q3

REPORT INFORMATION
  Report Type: 
  Country: None (occurrence: None)
  Receive Date: 20100928
  Receipt Date: 20100921
  Transmission Date: 20110219
  Serious: Yes (Other)
  Sender: FDA-Public Use
  Company Number: PHHY2010ES62440

PATIENT
  Age: 67 Year
  Sex: Female

DRUGS (10)
  1. VOLTAREN [Suspect]
     Indication: BACK PAIN
     Dosage: 50 MG, TID
     Route: 048
     Dates: start: 20100304, end: 20100307
  2. ALDOCUMAR [Interacting]
     Dosage: 5 MG, UNK
     Route: 048
     Dates: start: 20080101
  3. DEPRAX [Concomitant]
     Dosage: 50 MG, UNK
     Route: 048
  4. DEXNON [Concomitant]
     Dosage: 100 UG, UNK
     Route: 048
  5. DIGOXIN [Concomitant]
     Dosage: 0.25 MG WEEKLY
     Route: 048
  6. DOBUPAL [Concomitant]
     Dosage: 75 MG, UNK
     Route: 048
  7. FLATORIL [Concomitant]
     Dosage: 1 DF, BID
     Route: 048
  8. PARIET [Concomitant]
     Dosage: 20 MG, UNK
     Route: 048
  9. SEDOTIME [Concomitant]
     Dosage: 15 MG, UNK
     Route: 048
  10. SEGURIL [Concomitant]
     Dosage: 40 MG, UNK
     Route: 048

REACTIONS (3)
  - DRUG INTERACTION [None]
  - HAEMATEMESIS [None]
  - HAEMORRHAGE [None]
